FAERS Safety Report 14574851 (Version 1)
Quarter: 2018Q1

REPORT INFORMATION
  Report Type: Spontaneous
  Country: US (occurrence: US)
  Receive Date: 20180227
  Receipt Date: 20180227
  Transmission Date: 20180509
  Serious: No
  Sender: FDA-Public Use
  Company Number: US-ROCHE-1985116

PATIENT
  Age: 65 Year
  Sex: Female

DRUGS (1)
  1. XOLAIR [Suspect]
     Active Substance: OMALIZUMAB
     Indication: CHRONIC SPONTANEOUS URTICARIA
     Route: 065

REACTIONS (5)
  - Loss of consciousness [Unknown]
  - Nausea [Unknown]
  - Syncope [Unknown]
  - Dizziness [Unknown]
  - Orthostatic hypotension [Unknown]
